FAERS Safety Report 4772947-8 (Version None)
Quarter: 2005Q3

REPORT INFORMATION
  Report Type: 
  Country: None (occurrence: None)
  Receive Date: 20050919
  Receipt Date: 20050914
  Transmission Date: 20060218
  Serious: Yes (Hospitalization, Other)
  Sender: FDA-Public Use
  Company Number: PHFR2005GB03057

PATIENT
  Sex: Male

DRUGS (4)
  1. TEGRETOL [Suspect]
     Indication: EPILEPSY
     Route: 065
  2. CLONAZEPAM [Concomitant]
     Route: 065
  3. GABAPENTIN [Concomitant]
     Route: 065
  4. DIAZEPAM [Suspect]
     Dosage: 60 X 5MG OVERDOSE
     Route: 065
     Dates: start: 20050815

REACTIONS (2)
  - OVERDOSE [None]
  - SELF-MEDICATION [None]
